FAERS Safety Report 8506894 (Version 2)
Quarter: 2012Q4

REPORT INFORMATION
  Report Type: 
  Country: US (occurrence: US)
  Receive Date: 20120412
  Receipt Date: 20121112
  Transmission Date: 20130627
  Serious: Yes (Death)
  Sender: FDA-Public Use
  Company Number: US-ASTRAZENECA-2011SE43953

PATIENT
  Age: 78 Year
  Sex: Male

DRUGS (2)
  1. NEXIUM [Suspect]
     Route: 048
  2. SYMBICORT PMDI [Suspect]
     Dosage: ON UNKNOWN FREQUENCY
     Route: 055

REACTIONS (2)
  - Chronic obstructive pulmonary disease [Fatal]
  - Emphysema [Unknown]
